FAERS Safety Report 14457826 (Version 2)
Quarter: 2018Q1

REPORT INFORMATION
  Report Type: Spontaneous
  Country: DE (occurrence: DE)
  Receive Date: 20180130
  Receipt Date: 20180215
  Transmission Date: 20180509
  Serious: Yes (Hospitalization)
  Sender: FDA-Public Use
  Company Number: DE-JNJFOC-20180132951

PATIENT
  Age: 93 Year
  Sex: Female
  Weight: 47 kg

DRUGS (13)
  1. SALBUTAMOL [Concomitant]
     Active Substance: ALBUTEROL
     Route: 065
  2. XARELTO [Suspect]
     Active Substance: RIVAROXABAN
     Indication: ATRIAL FIBRILLATION
     Route: 048
     Dates: start: 2014, end: 2017
  3. DEKRISTOL [Concomitant]
     Active Substance: CHOLECALCIFEROL
     Dosage: DOSAGE: 20.000 IU, OW
     Route: 065
  4. HYLO-VISION [Concomitant]
     Active Substance: HYALURONATE SODIUM
     Dosage: DOSAGE: TID (1-1-1)
     Route: 065
  5. METOPROLOL. [Concomitant]
     Active Substance: METOPROLOL
     Dosage: DOSAGE: 23.75 MG, QD (1-0-0)
     Route: 065
  6. RISEDRONATE SODIUM. [Concomitant]
     Active Substance: RISEDRONATE SODIUM
     Route: 065
  7. MOVICOL [Concomitant]
     Active Substance: POLYETHYLENE GLYCOL 3350\POTASSIUM CHLORIDE\SODIUM BICARBONATE\SODIUM CHLORIDE
     Route: 065
  8. TILIDIN [Concomitant]
     Active Substance: NALOXONE HYDROCHLORIDE\TILIDINE HYDROCHLORIDE
     Dosage: DOSAGE: PRN, 3-5 DROPS
     Route: 065
  9. TORASEMID [Concomitant]
     Active Substance: TORSEMIDE
     Dosage: DOSAGE: 5 MG QD (1-0-0)
     Route: 065
  10. ENALAPRIL [Concomitant]
     Active Substance: ENALAPRIL
     Dosage: DOSAGE: 5 MG (1/2-0-0)
     Route: 065
  11. FOSTER [Concomitant]
     Active Substance: BECLOMETHASONE\FORMOTEROL
     Route: 065
  12. PANTOZOL [Concomitant]
     Active Substance: PANTOPRAZOLE SODIUM
     Dosage: DOSAGE: 40 MG QD (0-0-1)
     Route: 065
  13. DIGIMERCK [Concomitant]
     Active Substance: DIGITOXIN
     Dosage: DOSAGE: 0.05 MG, QD (1-0-0) WITH WEEKEND PAUSE
     Route: 065

REACTIONS (1)
  - Cerebral infarction [Recovering/Resolving]

NARRATIVE: CASE EVENT DATE: 20171231
